FAERS Safety Report 25170696 (Version 1)
Quarter: 2025Q2

REPORT INFORMATION
  Report Type: Spontaneous
  Country: US (occurrence: US)
  Receive Date: 20250408
  Receipt Date: 20250408
  Transmission Date: 20250717
  Serious: No
  Sender: TAKEDA
  Company Number: US-TAKEDA-2025TUS033736

PATIENT
  Sex: Female

DRUGS (1)
  1. CUVITRU [Suspect]
     Active Substance: HUMAN IMMUNOGLOBULIN G
     Indication: Product used for unknown indication
     Dosage: 12 GRAM, Q2WEEKS

REACTIONS (3)
  - Fatigue [Recovered/Resolved]
  - Headache [Recovered/Resolved]
  - Swelling [Recovered/Resolved]
